FAERS Safety Report 22311272 (Version 1)
Quarter: 2023Q2

REPORT INFORMATION
  Report Type: Spontaneous
  Country: GR (occurrence: GR)
  Receive Date: 20230511
  Receipt Date: 20230511
  Transmission Date: 20230722
  Serious: Yes (Other)
  Sender: FDA-Public Use
  Company Number: GR-002147023-NVSC2023GR059602

PATIENT
  Age: 24 Year
  Sex: Male

DRUGS (5)
  1. ADAKVEO [Suspect]
     Active Substance: CRIZANLIZUMAB-TMCA
     Indication: Sickle cell disease
     Dosage: 36 ML IN 64 ML OF 0.9% NACL, WITHIN 1 HOUR, AFTER 1 ADDITIONAL HOUR OF ADMINISTRATION OF DEXTROSE 50
     Route: 065
     Dates: start: 20210629
  2. HYDROXYUREA [Concomitant]
     Active Substance: HYDROXYUREA
     Indication: Product used for unknown indication
     Dosage: 15 MG/KG, QD (BW/DAY)
     Route: 065
     Dates: start: 2004
  3. HYDROXYUREA [Concomitant]
     Active Substance: HYDROXYUREA
     Dosage: 500 MG, BID
     Route: 065
  4. DEXTROSE [Concomitant]
     Active Substance: DEXTROSE\DEXTROSE MONOHYDRATE
     Indication: Product used for unknown indication
     Dosage: 500 ML
     Route: 065
  5. SODIUM CHLORIDE [Concomitant]
     Active Substance: SODIUM CHLORIDE
     Indication: Product used for unknown indication
     Dosage: 64 ML, WITHIN 1 HOUR, AFTER 1 ADDITIONAL HOUR OF ADMINISTRATION OF DEXTROSE 500 ML
     Route: 065

REACTIONS (2)
  - Thrombocytopenia [Recovered/Resolved]
  - Splenomegaly [Unknown]
